FAERS Safety Report 10346446 (Version 1)
Quarter: 2014Q3

REPORT INFORMATION
  Report Type: Spontaneous
  Country: US (occurrence: US)
  Receive Date: 20140728
  Receipt Date: 20140728
  Transmission Date: 20150326
  Serious: No
  Sender: FDA-Public Use
  Company Number: US-009507513-1407USA002586

PATIENT
  Sex: Female

DRUGS (1)
  1. NEXPLANON [Suspect]
     Active Substance: ETONOGESTREL
     Dosage: 1 ROD
     Route: 059
     Dates: start: 20140422, end: 20140521

REACTIONS (5)
  - Device expulsion [Recovered/Resolved]
  - Application site scab [Unknown]
  - Device deployment issue [Recovered/Resolved]
  - Implant site haemorrhage [Unknown]
  - Product quality issue [Unknown]

NARRATIVE: CASE EVENT DATE: 20140422
